FAERS Safety Report 12667306 (Version 1)
Quarter: 2016Q3

REPORT INFORMATION
  Report Type: Spontaneous
  Country: US (occurrence: None)
  Receive Date: 20160818
  Receipt Date: 20160818
  Transmission Date: 20161109
  Serious: No
  Sender: FDA-Public Use
  Company Number: None

PATIENT
  Age: 53 Year
  Sex: Female
  Weight: 70.76 kg

DRUGS (2)
  1. HUMIRA [Suspect]
     Active Substance: ADALIMUMAB
     Indication: RHEUMATOID ARTHRITIS
     Dosage: EVERY OTHER WEEK S/Q
     Route: 058
     Dates: start: 20160729
  2. HUMIRA [Suspect]
     Active Substance: ADALIMUMAB
     Indication: RHEUMATOID FACTOR NEGATIVE
     Dosage: EVERY OTHER WEEK S/Q
     Route: 058
     Dates: start: 20160729

REACTIONS (3)
  - Injection site hypersensitivity [None]
  - Limb discomfort [None]
  - Injection site rash [None]

NARRATIVE: CASE EVENT DATE: 20160805
